FAERS Safety Report 6268482-0 (Version None)
Quarter: 2009Q3

REPORT INFORMATION
  Report Type: 
  Country: None (occurrence: None)
  Receive Date: 20090710
  Receipt Date: 20090710
  Transmission Date: 20100115
  Serious: Yes (Other)
  Sender: FDA-Public Use
  Company Number: None

PATIENT
  Age: 59 Year
  Sex: Female
  Weight: 82.5547 kg

DRUGS (2)
  1. OMEPRAZOLE [Suspect]
     Indication: GASTROOESOPHAGEAL REFLUX DISEASE
     Dosage: 20 MG - ONE CAPSULE DAILY ONCE DAILY PO
     Route: 048
     Dates: start: 20081201, end: 20090101
  2. OMEPRAZOLE [Suspect]
     Indication: LARYNGEAL DISORDER
     Dosage: 20 MG - ONE CAPSULE DAILY ONCE DAILY PO
     Route: 048
     Dates: start: 20081201, end: 20090101

REACTIONS (1)
  - PALPITATIONS [None]
